FAERS Safety Report 16098298 (Version 1)
Quarter: 2019Q1

REPORT INFORMATION
  Report Type: Report from Study
  Country: KR (occurrence: KR)
  Receive Date: 20190321
  Receipt Date: 20190321
  Transmission Date: 20190418
  Serious: Yes (Hospitalization)
  Sender: FDA-Public Use
  Company Number: KR-CELLTRION INC.-2018KR024195

PATIENT

DRUGS (8)
  1. HERZUMA 440MG [Suspect]
     Active Substance: TRASTUZUMAB
     Indication: CHEMOTHERAPY
     Dosage: UNK
     Dates: start: 20190104, end: 20190104
  2. PEMBROLIZUMAB. [Suspect]
     Active Substance: PEMBROLIZUMAB
     Indication: HER-2 POSITIVE GASTRIC CANCER
     Dosage: 200 MG, 3 WEEKS
     Route: 042
     Dates: start: 20180921
  3. XELODA [Suspect]
     Active Substance: CAPECITABINE
     Indication: HER-2 POSITIVE GASTRIC CANCER
     Dosage: 1450 MG, 1000 MG/M2, QD FOR 2 WEEKS
     Route: 048
     Dates: start: 20180921, end: 20190216
  4. CISPLATIN. [Suspect]
     Active Substance: CISPLATIN
     Indication: CHEMOTHERAPY
     Dosage: UNK
     Dates: start: 20190104, end: 20190104
  5. PEMBROLIZUMAB. [Suspect]
     Active Substance: PEMBROLIZUMAB
     Indication: CHEMOTHERAPY
     Dosage: UNK
     Dates: start: 20190104, end: 20190104
  6. CISPLATIN. [Suspect]
     Active Substance: CISPLATIN
     Indication: HER-2 POSITIVE GASTRIC CANCER
     Dosage: 112.8 MG, 80 MG/M2, 3 WEEKS
     Route: 042
     Dates: start: 20180921, end: 20190102
  7. HERZUMA 440MG [Suspect]
     Active Substance: TRASTUZUMAB
     Indication: HER-2 POSITIVE GASTRIC CANCER
     Dosage: 350.4 MG, 8 MG/KG, EVERY  3 WEEKS
     Route: 042
     Dates: start: 20180921
  8. XELODA [Suspect]
     Active Substance: CAPECITABINE
     Indication: CHEMOTHERAPY
     Dosage: UNK
     Dates: start: 20190104, end: 20190104

REACTIONS (1)
  - Cerebral infarction [Not Recovered/Not Resolved]

NARRATIVE: CASE EVENT DATE: 20190216
